FAERS Safety Report 9298096 (Version 3)
Quarter: 2013Q3

REPORT INFORMATION
  Report Type: Report from Study
  Country: FR (occurrence: FR)
  Receive Date: 20130520
  Receipt Date: 20130816
  Transmission Date: 20140515
  Serious: Yes (Hospitalization)
  Sender: FDA-Public Use
  Company Number: PHHO2013FR006574

PATIENT
  Sex: 0

DRUGS (4)
  1. EVEROLIMUS [Suspect]
     Indication: NEUROFIBROMATOSIS
     Dosage: 10 MG, UNK (7 COURSES TOTAL)
     Route: 048
     Dates: start: 20120207, end: 20130129
  2. TRAMADOL [Concomitant]
     Indication: PAIN
     Dosage: 50 MG, QD
     Route: 048
     Dates: start: 20130220, end: 201303
  3. VALIUM [Concomitant]
     Indication: PAIN
     Dosage: 5 MG, QD
     Route: 048
     Dates: start: 20130129
  4. AMITRIPTYLINE [Concomitant]
     Indication: PAIN
     Dosage: UNK
     Route: 048
     Dates: start: 20130205, end: 201303

REACTIONS (2)
  - Sudden hearing loss [Recovered/Resolved with Sequelae]
  - Neoplasm [Recovered/Resolved with Sequelae]
